FAERS Safety Report 6329210-3 (Version None)
Quarter: 2009Q3

REPORT INFORMATION
  Report Type: 
  Country: None (occurrence: None)
  Receive Date: 20090825
  Receipt Date: 20090825
  Transmission Date: 20100115
  Serious: Yes (Death)
  Sender: FDA-Public Use
  Company Number: None

PATIENT
  Sex: Female

DRUGS (8)
  1. REVLIMID [Suspect]
     Indication: MULTIPLE MYELOMA
     Dosage: 10MG DAILY 21D/28D ORALLY
     Route: 048
  2. REVLMIID [Concomitant]
  3. FAMOTIDINE [Concomitant]
  4. LEVOTHROID [Concomitant]
  5. IPRATROPIUM INHALATION SOLN [Concomitant]
  6. KLOR-CON [Concomitant]
  7. VICODIN [Concomitant]
  8. TRAZODONE [Concomitant]

REACTIONS (3)
  - DISEASE PROGRESSION [None]
  - MULTIPLE MYELOMA [None]
  - THROMBOCYTOPENIA [None]
